FAERS Safety Report 9900261 (Version 2)
Quarter: 2014Q1

REPORT INFORMATION
  Report Type: Report from Study
  Country: US (occurrence: US)
  Receive Date: 20140215
  Receipt Date: 20140314
  Transmission Date: 20141002
  Serious: Yes (Death)
  Sender: FDA-Public Use
  Company Number: US-ROCHE-1348353

PATIENT
  Age: 38 Year
  Sex: Female

DRUGS (2)
  1. XELODA [Suspect]
     Indication: BREAST CANCER METASTATIC
     Dosage: 1 X 500 MG
     Route: 065
  2. XELODA [Suspect]
     Indication: BREAST CANCER METASTATIC
     Dosage: 2X500 MG TABS IN THE AM AND 1X500MG TAB IN PM
     Route: 065

REACTIONS (2)
  - Disease progression [Fatal]
  - Pneumonia aspiration [Fatal]
